FAERS Safety Report 6402260-4 (Version None)
Quarter: 2009Q4

REPORT INFORMATION
  Report Type: 
  Country: None (occurrence: None)
  Receive Date: 20091015
  Receipt Date: 20091002
  Transmission Date: 20100525
  Serious: Yes (Other)
  Sender: FDA-Public Use
  Company Number: PHEH2009US07361

PATIENT
  Sex: Female
  Weight: 68.481 kg

DRUGS (2)
  1. GLEEVEC [Suspect]
     Indication: GASTROINTESTINAL STROMAL TUMOUR
     Dosage: 400 MG DAILY
     Route: 048
     Dates: start: 20080717, end: 20090123
  2. GLEEVEC [Suspect]
     Dosage: 100 MG, QD
     Route: 048
     Dates: start: 20090619, end: 20090630

REACTIONS (6)
  - HEPATITIS A [None]
  - HEPATOTOXICITY [None]
  - JOINT SWELLING [None]
  - PERIORBITAL OEDEMA [None]
  - RENAL CYST [None]
  - TRANSAMINASES INCREASED [None]
